FAERS Safety Report 11919587 (Version 2)
Quarter: 2016Q1

REPORT INFORMATION
  Report Type: Report from Study
  Country: BR (occurrence: BR)
  Receive Date: 20160115
  Receipt Date: 20160118
  Transmission Date: 20160526
  Serious: Yes (Death)
  Sender: FDA-Public Use
  Company Number: PHHY2016BR003857

PATIENT
  Sex: Female
  Weight: 32 kg

DRUGS (4)
  1. TRILEPTAL [Suspect]
     Active Substance: OXCARBAZEPINE
     Indication: NERVOUSNESS
     Dosage: 1 DF, QD
     Route: 065
     Dates: start: 201509, end: 20151222
  2. CITALOPRAM [Concomitant]
     Active Substance: CITALOPRAM HYDROBROMIDE
     Indication: DEPRESSION
     Dosage: 1 DF, QD (THROUGH GASTROSTOMY PROBE)
     Route: 065
     Dates: start: 2013
  3. RISPERIDONE. [Concomitant]
     Active Substance: RISPERIDONE
     Indication: SLEEP DISORDER
     Dosage: 1 DF, QD (THROUGH GASTROSTOMY PROBE)
     Route: 065
     Dates: start: 2013
  4. TRILEPTAL [Suspect]
     Active Substance: OXCARBAZEPINE
     Indication: AGITATION
     Dosage: 2 DF, QD
     Route: 048
     Dates: start: 2013

REACTIONS (6)
  - Haemorrhagic stroke [Fatal]
  - Off label use [Unknown]
  - Arrhythmia [Fatal]
  - Dementia [Fatal]
  - Decubitus ulcer [Fatal]
  - Wrong technique in product usage process [Unknown]
